FAERS Safety Report 14380156 (Version 2)
Quarter: 2018Q1

REPORT INFORMATION
  Report Type: Report from Study
  Country: US (occurrence: US)
  Receive Date: 20180112
  Receipt Date: 20180131
  Transmission Date: 20180509
  Serious: No
  Sender: FDA-Public Use
  Company Number: US-ROCHE-2052980

PATIENT
  Age: 42 Year
  Sex: Male
  Weight: 92.16 kg

DRUGS (2)
  1. OCREVUS [Suspect]
     Active Substance: OCRELIZUMAB
     Indication: MULTIPLE SCLEROSIS
     Dosage: ONGOING: YES?PATIENT WAS PRESCRIBED WITH INTRAVENOUS OCRELIZUMAB INFUSION 300 MG ON DAY 1 AND 300 MG
     Route: 042
     Dates: start: 20171219
  2. OCREVUS [Suspect]
     Active Substance: OCRELIZUMAB
     Route: 042
     Dates: start: 20180102

REACTIONS (6)
  - Chills [Unknown]
  - Influenza like illness [Unknown]
  - Nasal congestion [Unknown]
  - Pyrexia [Recovered/Resolved]
  - Nasopharyngitis [Unknown]
  - Rhinorrhoea [Unknown]

NARRATIVE: CASE EVENT DATE: 20180105
